FAERS Safety Report 6244683-2 (Version None)
Quarter: 2009Q2

REPORT INFORMATION
  Report Type: 
  Country: None (occurrence: None)
  Receive Date: 20090625
  Receipt Date: 20090622
  Transmission Date: 20091009
  Serious: Yes (Hospitalization)
  Sender: FDA-Public Use
  Company Number: BR-WYE-H09859609

PATIENT
  Sex: Male

DRUGS (15)
  1. SIROLIMUS [Suspect]
     Indication: PROPHYLAXIS AGAINST TRANSPLANT REJECTION
     Route: 048
     Dates: start: 20040629, end: 20040701
  2. SIROLIMUS [Suspect]
     Route: 048
     Dates: start: 20040702, end: 20040701
  3. DACLIZUMAB [Concomitant]
     Indication: PROPHYLAXIS AGAINST TRANSPLANT REJECTION
     Dosage: 140 MG ONCE
     Route: 042
     Dates: start: 20040628, end: 20040628
  4. DACLIZUMAB [Concomitant]
     Route: 042
     Dates: start: 20040701, end: 20040101
  5. METHYLPREDNISOLONE [Concomitant]
     Indication: PROPHYLAXIS AGAINST TRANSPLANT REJECTION
     Route: 042
     Dates: start: 20040628, end: 20040629
  6. PREDNISONE [Concomitant]
     Indication: PROPHYLAXIS AGAINST TRANSPLANT REJECTION
     Dosage: VARIABLE DOSE
     Route: 048
     Dates: start: 20040629
  7. SULFAMETHOXAZOLE AND TRIMETHOPRIM [Concomitant]
     Dosage: UNKNOWN
     Route: 065
     Dates: start: 20040628, end: 20040903
  8. GANCICLOVIR [Concomitant]
     Dosage: UNKNOWN
     Route: 065
     Dates: start: 20040629, end: 20040714
  9. MINOXIDIL [Concomitant]
     Dosage: UNKNOWN
     Route: 065
     Dates: start: 20040629, end: 20040903
  10. NIFEDIPINE [Concomitant]
     Dosage: UNKNOWN
     Route: 065
     Dates: start: 20040629, end: 20040701
  11. PROPRANOLOL HYDROCHLORIDE [Concomitant]
     Dosage: UNKNOWN
     Route: 065
     Dates: start: 20040701
  12. RANITIDINE [Concomitant]
     Dosage: UNKNOWN
     Route: 065
     Dates: start: 20040628
  13. MYCOPHENOLATE MOFETIL [Suspect]
     Indication: PROPHYLAXIS AGAINST TRANSPLANT REJECTION
     Route: 048
     Dates: start: 20040629, end: 20040701
  14. MYCOPHENOLATE MOFETIL [Suspect]
     Route: 048
     Dates: start: 20040701
  15. FUROSEMIDE INTENSOL [Concomitant]
     Dosage: UNKNOWN
     Route: 065
     Dates: start: 20040721

REACTIONS (3)
  - CITROBACTER INFECTION [None]
  - PYELONEPHRITIS [None]
  - URETERIC FISTULA [None]
